FAERS Safety Report 6615782-8 (Version None)
Quarter: 2010Q1

REPORT INFORMATION
  Report Type: 
  Country: None (occurrence: None)
  Receive Date: 20100305
  Receipt Date: 20100225
  Transmission Date: 20100710
  Serious: Yes (Life-Threatening, Hospitalization, Other)
  Sender: FDA-Public Use
  Company Number: DE-AMGEN-QUU390245

PATIENT
  Sex: Male
  Weight: 60 kg

DRUGS (11)
  1. ARANESP [Suspect]
     Indication: DIALYSIS
     Route: 042
     Dates: start: 20090301, end: 20100118
  2. METAMIZOLE [Suspect]
     Route: 048
     Dates: start: 20091230, end: 20100203
  3. BONDIOL [Concomitant]
     Route: 048
     Dates: start: 20091217
  4. AMITRIPTYLINE HCL [Concomitant]
     Route: 048
     Dates: start: 20091217
  5. MOVICOL [Concomitant]
     Route: 048
     Dates: start: 20091217
  6. FENTANYL [Concomitant]
     Route: 062
     Dates: start: 20091217
  7. RENAPRO [Concomitant]
     Route: 048
     Dates: start: 20091217
  8. VITARENAL [Concomitant]
     Route: 048
     Dates: start: 20091217
  9. FERRLECIT [Concomitant]
  10. CONCOR [Concomitant]
  11. IRON [Concomitant]
     Dates: start: 20091223

REACTIONS (5)
  - APLASIA PURE RED CELL [None]
  - HAEMATOLOGICAL MALIGNANCY [None]
  - MULTIPLE MYELOMA [None]
  - MYELOFIBROSIS [None]
  - NEOPLASM MALIGNANT [None]
